FAERS Safety Report 20737590 (Version 2)
Quarter: 2022Q2

REPORT INFORMATION
  Report Type: Report from Study
  Country: MA (occurrence: None)
  Receive Date: 20220422
  Receipt Date: 20220530
  Transmission Date: 20220720
  Serious: Yes (Hospitalization)
  Sender: FDA-Public Use
  Company Number: MA-Merck Healthcare KGaA-9314022

PATIENT
  Age: 51 Year
  Sex: Female

DRUGS (1)
  1. REBIF [Suspect]
     Active Substance: INTERFERON BETA-1A
     Indication: Product used for unknown indication
     Dates: start: 20190301

REACTIONS (2)
  - Disease recurrence [Recovering/Resolving]
  - Optic neuritis [Unknown]

NARRATIVE: CASE EVENT DATE: 20220310
